FAERS Safety Report 7551254-4 (Version None)
Quarter: 2011Q2

REPORT INFORMATION
  Report Type: 
  Country: None (occurrence: None)
  Receive Date: 20110616
  Receipt Date: 20110603
  Transmission Date: 20111010
  Serious: Yes (Other)
  Sender: FDA-Public Use
  Company Number: PHHY2011VE48776

PATIENT
  Sex: Female

DRUGS (5)
  1. METHOTREXATE [Concomitant]
     Dosage: 2.5 MG, TWICE A WEEK
     Dates: start: 19990101
  2. RITUXIMAB [Concomitant]
     Dosage: 2000 MG, EACH SIX MONTHS
     Dates: start: 20080101
  3. MEDROL [Concomitant]
     Dosage: 4 MG, QD
  4. ZOLEDRONIC ACID [Suspect]
     Indication: OSTEOPOROSIS
     Dosage: 5 MG,
     Route: 042
     Dates: start: 20101103
  5. MEDROL [Concomitant]
     Dosage: 16 MG, QD
     Dates: start: 19990101, end: 20020101

REACTIONS (2)
  - FEMUR FRACTURE [None]
  - HYPOTONIA [None]
